FAERS Safety Report 18105640 (Version 1)
Quarter: 2020Q3

REPORT INFORMATION
  Report Type: Spontaneous
  Country: GR (occurrence: GR)
  Receive Date: 20200803
  Receipt Date: 20200803
  Transmission Date: 20201103
  Serious: Yes (Other)
  Sender: FDA-Public Use
  Company Number: GR-BAUSCH-BL-2020-021556

PATIENT
  Age: 62 Year
  Sex: Male

DRUGS (5)
  1. DARATUMUMAB [Suspect]
     Active Substance: DARATUMUMAB
     Dosage: MONTHLY FOR CYCLE 7 ONWARDS
     Route: 065
  2. DARATUMUMAB [Suspect]
     Active Substance: DARATUMUMAB
     Dosage: BIWWEKLY FOR CYCLES 4?6
     Route: 065
  3. LENALIDOMIDE [Suspect]
     Active Substance: LENALIDOMIDE
     Indication: POEMS SYNDROME
     Dosage: 25MG DAY 1?21 EVERY 4 WEEKS
     Route: 065
  4. DEXAMETHASONE. [Suspect]
     Active Substance: DEXAMETHASONE
     Indication: POEMS SYNDROME
     Dosage: 10 CYCLES
     Route: 065
  5. DARATUMUMAB [Suspect]
     Active Substance: DARATUMUMAB
     Indication: POEMS SYNDROME
     Dosage: WEEKLY FOR CYCLES 1?2
     Route: 065

REACTIONS (3)
  - Neutropenia [Unknown]
  - Anaemia [Unknown]
  - Constipation [Unknown]
